FAERS Safety Report 20511629 (Version 2)
Quarter: 2022Q1

REPORT INFORMATION
  Report Type: Other
  Country: JP (occurrence: JP)
  Receive Date: 20220224
  Receipt Date: 20220226
  Transmission Date: 20220423
  Serious: Yes (Other)
  Sender: FDA-Public Use
  Company Number: JP-CHUGAI-2022005103

PATIENT
  Age: 6 Decade
  Sex: Female

DRUGS (1)
  1. TECENTRIQ [Suspect]
     Active Substance: ATEZOLIZUMAB
     Indication: Small cell lung cancer extensive stage
     Route: 041

REACTIONS (4)
  - Cytomegalovirus enterocolitis [Recovering/Resolving]
  - Immune-mediated enterocolitis [Unknown]
  - Malaise [Unknown]
  - Neuropathy peripheral [Unknown]
